FAERS Safety Report 21809547 (Version 1)
Quarter: 2023Q1

REPORT INFORMATION
  Report Type: Report from Study
  Country: US (occurrence: US)
  Receive Date: 20230103
  Receipt Date: 20230103
  Transmission Date: 20230418
  Serious: No
  Sender: FDA-Public Use
  Company Number: US-ABBVIE-4225558

PATIENT
  Sex: Male

DRUGS (2)
  1. HUMIRA [Suspect]
     Active Substance: ADALIMUMAB
     Indication: Psoriasis
     Dosage: MISSED DOSE 3-5 WEEKS AGO, FORM STRENGTH: 40 MILLIGRAM?LAST ADMIN DATE-2022
     Route: 058
  2. HUMIRA [Suspect]
     Active Substance: ADALIMUMAB
     Dosage: FORM STRENGTH: 40 MILLIGRAM, FIRST ADMIN DATE-2022
     Route: 058

REACTIONS (1)
  - Pruritus [Not Recovered/Not Resolved]
